FAERS Safety Report 6271739-0 (Version None)
Quarter: 2009Q3

REPORT INFORMATION
  Report Type: 
  Country: None (occurrence: None)
  Receive Date: 20090716
  Receipt Date: 20090716
  Transmission Date: 20100115
  Serious: No
  Sender: FDA-Public Use
  Company Number: None

PATIENT
  Age: 70 Year
  Sex: Female
  Weight: 80.7403 kg

DRUGS (2)
  1. BACTRIM [Suspect]
     Indication: LOCAL SWELLING
     Dosage: 1 TAB 2X DAY PO
     Route: 048
     Dates: start: 20090626, end: 20090703
  2. BACTRIM [Suspect]
     Indication: SWELLING FACE
     Dosage: 1 TAB 2X DAY PO
     Route: 048
     Dates: start: 20090626, end: 20090703

REACTIONS (1)
  - RASH ERYTHEMATOUS [None]
